FAERS Safety Report 6158627-5 (Version None)
Quarter: 2009Q2

REPORT INFORMATION
  Report Type: 
  Country: None (occurrence: None)
  Receive Date: 20090417
  Receipt Date: 20090409
  Transmission Date: 20091009
  Serious: Yes (Death, Hospitalization)
  Sender: FDA-Public Use
  Company Number: CA-BAYER-200816787GPV

PATIENT
  Age: 53 Year
  Sex: Male

DRUGS (12)
  1. ASPIRIN [Suspect]
     Indication: UNEVALUABLE EVENT
     Dosage: UNK
     Route: 065
  2. INDOMETHACIN [Suspect]
     Indication: BACK PAIN
     Dosage: TOTAL DAILY DOSE: 200 MG
     Route: 054
  3. TENOFOVIR [Suspect]
     Indication: HIV INFECTION
     Route: 065
  4. DIDANOSINE [Concomitant]
     Indication: ANTIRETROVIRAL THERAPY
     Dosage: ADJUSTED DOSE OF 250 MG
     Route: 065
  5. REYATAZ [Concomitant]
     Indication: ANTIRETROVIRAL THERAPY
     Dosage: UNK
     Route: 048
  6. RITONAVIR [Concomitant]
     Indication: ANTIRETROVIRAL THERAPY
     Dosage: UNK
  7. TRIMERHOPRIM SULFAMETHOXAZOLE [Concomitant]
     Indication: DRUG USE FOR UNKNOWN INDICATION
     Route: 065
  8. TEMAZEPAM [Concomitant]
     Indication: DRUG USE FOR UNKNOWN INDICATION
     Route: 065
  9. RANITIDINE [Concomitant]
     Indication: DRUG USE FOR UNKNOWN INDICATION
     Route: 065
  10. LORAZEPAM [Concomitant]
     Indication: DRUG USE FOR UNKNOWN INDICATION
     Route: 065
  11. SERTRALINE HCL [Concomitant]
     Indication: DRUG USE FOR UNKNOWN INDICATION
     Route: 065
  12. PROPRANOLOL [Concomitant]
     Indication: DRUG USE FOR UNKNOWN INDICATION
     Route: 065

REACTIONS (4)
  - BLOOD CREATINE INCREASED [None]
  - DIALYSIS [None]
  - GENERAL PHYSICAL HEALTH DETERIORATION [None]
  - RENAL TUBULAR NECROSIS [None]
